FAERS Safety Report 18974981 (Version 1)
Quarter: 2021Q1

REPORT INFORMATION
  Report Type: Spontaneous
  Country: AU (occurrence: AU)
  Receive Date: 20210305
  Receipt Date: 20210305
  Transmission Date: 20210420
  Serious: Yes (Other)
  Sender: FDA-Public Use
  Company Number: AU-ALLERGAN-2109936US

PATIENT
  Sex: Male

DRUGS (2)
  1. GANFORT PF [Suspect]
     Active Substance: BIMATOPROST\TIMOLOL
     Indication: GLAUCOMA
     Dosage: UNK
     Route: 047
     Dates: start: 20150515
  2. ALPHAGAN P [Concomitant]
     Active Substance: BRIMONIDINE TARTRATE
     Indication: GLAUCOMA
     Dosage: UNK
     Route: 047
     Dates: start: 20171103, end: 20180511

REACTIONS (4)
  - Visual field defect [Unknown]
  - Intraocular pressure increased [Recovering/Resolving]
  - Retinal disorder [Unknown]
  - Optic nerve cupping [Unknown]

NARRATIVE: CASE EVENT DATE: 20171103
